FAERS Safety Report 10599019 (Version 6)
Quarter: 2025Q2

REPORT INFORMATION
  Report Type: Spontaneous
  Country: NL (occurrence: NL)
  Receive Date: 20141121
  Receipt Date: 20250407
  Transmission Date: 20250717
  Serious: Yes (Death, Hospitalization, Other)
  Sender: SANOFI AVENTIS
  Company Number: NL-SA-2014SA156738

PATIENT
  Age: 65 Year
  Sex: Female

DRUGS (16)
  1. OXALIPLATIN [Suspect]
     Active Substance: OXALIPLATIN
     Indication: Juvenile polyposis syndrome
     Route: 042
     Dates: start: 20130214, end: 20130215
  2. OXALIPLATIN [Suspect]
     Active Substance: OXALIPLATIN
     Indication: Adenocarcinoma
     Route: 042
     Dates: start: 20130307, end: 20130308
  3. EPIRUBICIN [Suspect]
     Active Substance: EPIRUBICIN
     Indication: Juvenile polyposis syndrome
     Route: 042
     Dates: start: 20130214, end: 20130215
  4. EPIRUBICIN [Suspect]
     Active Substance: EPIRUBICIN
     Indication: Adenocarcinoma
     Route: 042
     Dates: start: 20130307, end: 20130308
  5. CAPECITABINE [Suspect]
     Active Substance: CAPECITABINE
     Indication: Juvenile polyposis syndrome
     Dosage: 1000 MG, BID
     Route: 048
     Dates: start: 20130214, end: 20130307
  6. CAPECITABINE [Suspect]
     Active Substance: CAPECITABINE
     Dosage: 1000 MG, BID
     Route: 048
     Dates: start: 20130307, end: 20130311
  7. PRIMPERAN [Concomitant]
     Active Substance: METOCLOPRAMIDE HYDROCHLORIDE
     Route: 048
     Dates: start: 20130102
  8. ONDANSETRON [Concomitant]
     Active Substance: ONDANSETRON
     Route: 048
     Dates: start: 20130204
  9. ONDANSETRON [Concomitant]
     Active Substance: ONDANSETRON
     Route: 042
     Dates: start: 20130214
  10. CALCIUM GLUCONATE [Concomitant]
     Active Substance: CALCIUM GLUCONATE
     Route: 042
     Dates: start: 20130214
  11. DEXAMETHASONE [Concomitant]
     Active Substance: DEXAMETHASONE
     Route: 051
     Dates: start: 20130214
  12. MAGNESIUM SULFATE [Concomitant]
     Active Substance: MAGNESIUM SULFATE
     Route: 042
     Dates: start: 20130214
  13. LOPERAMIDE [Concomitant]
     Active Substance: LOPERAMIDE
     Route: 048
     Dates: start: 20130311
  14. ANASTROZOLE [Concomitant]
     Active Substance: ANASTROZOLE
     Dosage: 1 MG,QD
  15. PANTOPRAZOLE [Concomitant]
     Active Substance: PANTOPRAZOLE
     Dosage: 40 MG,QD
  16. FERROUS FUMARATE [Concomitant]
     Active Substance: FERROUS FUMARATE
     Dosage: 2 DF,QD

REACTIONS (15)
  - Mucosal inflammation [Fatal]
  - Enteritis [Fatal]
  - Intestinal ulcer [Fatal]
  - Intestinal haemorrhage [Fatal]
  - Colitis [Fatal]
  - Tracheitis [Fatal]
  - Bronchitis [Fatal]
  - Abdominal sepsis [Fatal]
  - Ascites [Fatal]
  - Pulmonary oedema [Fatal]
  - Spleen disorder [Fatal]
  - Multiple organ dysfunction syndrome [Fatal]
  - Neutropenia [Fatal]
  - Febrile neutropenia [Unknown]
  - Product use issue [Unknown]

NARRATIVE: CASE EVENT DATE: 20130101
